FAERS Safety Report 24885432 (Version 1)
Quarter: 2025Q1

REPORT INFORMATION
  Report Type: Spontaneous
  Country: JP (occurrence: JP)
  Receive Date: 20250124
  Receipt Date: 20250124
  Transmission Date: 20250408
  Serious: Yes (Other)
  Sender: ANI
  Company Number: JP-ANIPHARMA-2025-JP-000014

PATIENT
  Age: 73 Year
  Sex: Female

DRUGS (4)
  1. CANDESARTAN CILEXETIL [Suspect]
     Active Substance: CANDESARTAN CILEXETIL
     Indication: Hypertension
     Route: 048
     Dates: start: 20210303, end: 20250109
  2. VONOPRAZAN FUMARATE [Suspect]
     Active Substance: VONOPRAZAN FUMARATE
     Route: 048
     Dates: start: 20240808, end: 20240818
  3. BENIDIPINE HYDROCHLORIDE [Suspect]
     Active Substance: BENIDIPINE HYDROCHLORIDE
     Route: 048
     Dates: start: 20210303, end: 20250109
  4. SULPIRIDE [Suspect]
     Active Substance: SULPIRIDE
     Route: 048
     Dates: start: 20210303, end: 20250109

REACTIONS (3)
  - Cerebral infarction [Unknown]
  - Dehydration [Unknown]
  - Abdominal discomfort [Recovered/Resolved with Sequelae]

NARRATIVE: CASE EVENT DATE: 20240808
